FAERS Safety Report 18584681 (Version 2)
Quarter: 2020Q4

REPORT INFORMATION
  Report Type: Spontaneous
  Country: US (occurrence: US)
  Receive Date: 20201207
  Receipt Date: 20201215
  Transmission Date: 20210114
  Serious: Yes (Other)
  Sender: FDA-Public Use
  Company Number: US-TEVA-2020-US-1856428

PATIENT
  Age: 47 Year
  Sex: Female

DRUGS (1)
  1. CARBIDOPA AND LEVODOPA [Suspect]
     Active Substance: CARBIDOPA\LEVODOPA
     Indication: PARKINSON^S DISEASE
     Dosage: 25 MG / 100 MG
     Route: 065
     Dates: start: 20201111

REACTIONS (8)
  - Heart rate increased [Unknown]
  - Product quality issue [Unknown]
  - Drug ineffective [Unknown]
  - Gait inability [Unknown]
  - Dyspnoea [Unknown]
  - Syncope [Unknown]
  - Head discomfort [Unknown]
  - Headache [Unknown]

NARRATIVE: CASE EVENT DATE: 20201127
